FAERS Safety Report 4374604-9 (Version None)
Quarter: 2004Q2

REPORT INFORMATION
  Report Type: 
  Country: None (occurrence: None)
  Receive Date: 20040609
  Receipt Date: 20040604
  Transmission Date: 20050107
  Serious: Yes (Hospitalization)
  Sender: FDA-Public Use
  Company Number: FR-MERCK-0406FRA00016

PATIENT
  Age: 74 Year
  Sex: Female

DRUGS (4)
  1. CAFFEINE AND PHENOBARBITAL [Concomitant]
     Indication: EPILEPSY
     Route: 048
     Dates: start: 20020215
  2. LEVOTHYROXINE SODIUM [Concomitant]
     Indication: HYPOTHYROIDISM
     Route: 048
     Dates: start: 20020215
  3. VIOXX [Suspect]
     Indication: OSTEOARTHRITIS
     Route: 048
     Dates: start: 20040415, end: 20040421
  4. VIOXX [Suspect]
     Route: 048
     Dates: start: 20040423, end: 20040424

REACTIONS (2)
  - DIARRHOEA [None]
  - MELAENA [None]
